FAERS Safety Report 4952336-3 (Version None)
Quarter: 2006Q1

REPORT INFORMATION
  Report Type: 
  Country: None (occurrence: None)
  Receive Date: 20060131
  Receipt Date: 20050922
  Transmission Date: 20060701
  Serious: Yes (Other)
  Sender: FDA-Public Use
  Company Number: WAES 0509USA03560

PATIENT
  Sex: 0

DRUGS (2)
  1. INVANZ [Suspect]
     Indication: CELLULITIS
     Dosage: 1 GM/DAILY/IV
     Route: 042
  2. VANCOMYCIN [Suspect]

REACTIONS (2)
  - CONVULSION [None]
  - NEOPLASM [None]
